FAERS Safety Report 19727993 (Version 1)
Quarter: 2021Q3

REPORT INFORMATION
  Report Type: Spontaneous
  Country: US (occurrence: US)
  Receive Date: 20210820
  Receipt Date: 20210820
  Transmission Date: 20211014
  Serious: Yes (Other)
  Sender: FDA-Public Use
  Company Number: US-MYLANLABS-2021M1053542

PATIENT
  Age: 72 Year
  Sex: Male

DRUGS (2)
  1. LORAZEPAM. [Suspect]
     Active Substance: LORAZEPAM
     Indication: MYOCLONUS
  2. LORAZEPAM. [Suspect]
     Active Substance: LORAZEPAM
     Indication: TREMOR
     Dosage: UNK
     Route: 040

REACTIONS (1)
  - Drug ineffective [Unknown]
